FAERS Safety Report 9995554 (Version 1)
Quarter: 2014Q1

REPORT INFORMATION
  Report Type: Spontaneous
  Country: IT (occurrence: None)
  Receive Date: 20140307
  Receipt Date: 20140307
  Transmission Date: 20141002
  Serious: Yes (Other)
  Sender: FDA-Public Use
  Company Number: 2210272

PATIENT
  Age: 41 Year
  Sex: Female
  Weight: 47 kg

DRUGS (11)
  1. OXALIPLATIN [Suspect]
     Indication: PANCREATIC CARCINOMA
     Route: 042
  2. IRINOTECAN [Concomitant]
  3. FLUOROURACIL [Concomitant]
  4. TRIMETON /00072502/ [Concomitant]
  5. PLASIL /00041901/ [Concomitant]
  6. DEXAMETHASONE [Concomitant]
  7. FOLINIC ACID [Concomitant]
  8. ALOXI [Concomitant]
  9. ATROPINE [Concomitant]
  10. GLUCOSE [Concomitant]
  11. SALINE /00075401/ [Concomitant]

REACTIONS (3)
  - Laryngospasm [None]
  - Dyslalia [None]
  - Hyperhidrosis [None]
